FAERS Safety Report 10274333 (Version 1)
Quarter: 2014Q3

REPORT INFORMATION
  Report Type: Spontaneous
  Country: US (occurrence: US)
  Receive Date: 20140702
  Receipt Date: 20140702
  Transmission Date: 20150326
  Serious: No
  Sender: FDA-Public Use
  Company Number: US-TEVA-486332USA

PATIENT
  Age: 23 Year
  Sex: Female
  Weight: 76.27 kg

DRUGS (3)
  1. YAZ [Concomitant]
     Active Substance: DROSPIRENONE\ETHINYL ESTRADIOL
     Indication: CONTRACEPTION
  2. NUVIGIL [Suspect]
     Active Substance: ARMODAFINIL
     Indication: CIRCADIAN RHYTHM SLEEP DISORDER
     Dates: start: 20140529, end: 20140529
  3. SYNTHROID [Concomitant]
     Active Substance: LEVOTHYROXINE SODIUM
     Indication: THYROID DISORDER

REACTIONS (1)
  - Tic [Recovered/Resolved]

NARRATIVE: CASE EVENT DATE: 20140529
